FAERS Safety Report 6282736-3 (Version None)
Quarter: 2009Q3

REPORT INFORMATION
  Report Type: 
  Country: None (occurrence: None)
  Receive Date: 20090722
  Receipt Date: 20090714
  Transmission Date: 20100115
  Serious: Yes (Other)
  Sender: FDA-Public Use
  Company Number: ALL1-2009-01660

PATIENT
  Age: 73 Year
  Sex: Male
  Weight: 81.6 kg

DRUGS (4)
  1. LIALDA [Suspect]
     Indication: COLITIS MICROSCOPIC
     Dosage: 4.8 G, 1X/DAY;QD, ORAL
     Route: 048
     Dates: start: 20090430, end: 20090511
  2. ATENOLOL [Concomitant]
  3. THYROID TAB [Concomitant]
  4. IMODIUM /00384302/ (LOPERAMIDE HYDROCHLORIDE) [Concomitant]

REACTIONS (8)
  - CHILLS [None]
  - COLITIS MICROSCOPIC [None]
  - CONDITION AGGRAVATED [None]
  - DISORIENTATION [None]
  - MICTURITION URGENCY [None]
  - POLLAKIURIA [None]
  - PYREXIA [None]
  - TREMOR [None]
